FAERS Safety Report 24717292 (Version 2)
Quarter: 2024Q4

REPORT INFORMATION
  Report Type: Spontaneous
  Country: HR (occurrence: HR)
  Receive Date: 20241210
  Receipt Date: 20241224
  Transmission Date: 20250114
  Serious: Yes (Hospitalization, Other)
  Sender: MERCK
  Company Number: HR-009507513-2412HRV002649

PATIENT
  Sex: Male

DRUGS (3)
  1. KEYTRUDA [Suspect]
     Active Substance: PEMBROLIZUMAB
     Indication: Non-small cell lung cancer
     Dosage: UNK
     Dates: start: 202403
  2. PEMETREXED [Suspect]
     Active Substance: PEMETREXED
     Indication: Non-small cell lung cancer
     Dosage: UNK
     Dates: start: 202403
  3. CISPLATIN [Suspect]
     Active Substance: CISPLATIN
     Indication: Non-small cell lung cancer
     Dosage: UNK
     Dates: start: 202403

REACTIONS (5)
  - Urosepsis [Unknown]
  - Neutropenia [Unknown]
  - Pneumonia [Unknown]
  - Pneumonitis [Unknown]
  - Lung consolidation [Unknown]

NARRATIVE: CASE EVENT DATE: 20240101
